FAERS Safety Report 23785117 (Version 2)
Quarter: 2024Q3

REPORT INFORMATION
  Report Type: Spontaneous
  Country: JP (occurrence: JP)
  Receive Date: 20240425
  Receipt Date: 20240920
  Transmission Date: 20241016
  Serious: Yes (Other)
  Sender: EMD SERONO INC
  Company Number: JP-Merck Healthcare KGaA-2024020820

PATIENT
  Age: 88 Year
  Sex: Male
  Weight: 60 kg

DRUGS (14)
  1. BAVENCIO [Suspect]
     Active Substance: AVELUMAB
     Indication: Bladder transitional cell carcinoma
     Route: 041
     Dates: start: 20220303
  2. BAVENCIO [Suspect]
     Active Substance: AVELUMAB
     Route: 041
     Dates: start: 20240130, end: 20240130
  3. ASPIRIN [Concomitant]
     Active Substance: ASPIRIN
     Indication: Product used for unknown indication
  4. ESOMEPRAZOLE [Concomitant]
     Active Substance: ESOMEPRAZOLE
     Indication: Product used for unknown indication
  5. SODIUM FERROUS CITRATE [Concomitant]
     Active Substance: SODIUM FERROUS CITRATE
     Indication: Product used for unknown indication
  6. ALLOPURINOL [Concomitant]
     Active Substance: ALLOPURINOL
     Indication: Product used for unknown indication
  7. TAMSULOSIN HYDROCHLORIDE [Concomitant]
     Active Substance: TAMSULOSIN HYDROCHLORIDE
     Indication: Product used for unknown indication
  8. MIYA-BM [Concomitant]
     Active Substance: CLOSTRIDIUM BUTYRICUM SPORES STRAIN M-55
     Indication: Product used for unknown indication
  9. HERBALS [Concomitant]
     Active Substance: HERBALS
     Indication: Product used for unknown indication
     Dosage: TSUMURA DAIKENCHUTO EXTRACT GRANULES
  10. SODIUM FERROUS CITRATE [Concomitant]
     Active Substance: SODIUM FERROUS CITRATE
     Indication: Product used for unknown indication
  11. JARDIANCE [Concomitant]
     Active Substance: EMPAGLIFLOZIN
     Indication: Product used for unknown indication
  12. PITAVASTATIN CALCIUM [Concomitant]
     Active Substance: PITAVASTATIN CALCIUM
     Indication: Product used for unknown indication
  13. DIMETHICONE [Concomitant]
     Active Substance: DIMETHICONE
     Indication: Product used for unknown indication
  14. MAGNESIUM OXIDE [Concomitant]
     Active Substance: MAGNESIUM OXIDE
     Indication: Product used for unknown indication

REACTIONS (2)
  - Small intestinal perforation [Recovering/Resolving]
  - Immune-mediated enterocolitis [Recovering/Resolving]

NARRATIVE: CASE EVENT DATE: 20240131
